FAERS Safety Report 6182782-4 (Version None)
Quarter: 2009Q2

REPORT INFORMATION
  Report Type: 
  Country: None (occurrence: None)
  Receive Date: 20090505
  Receipt Date: 20090420
  Transmission Date: 20091009
  Serious: Yes (Other)
  Sender: FDA-Public Use
  Company Number: 2009S1006925

PATIENT
  Age: 36 Year
  Sex: Female
  Weight: 61.8 kg

DRUGS (3)
  1. CITALOPRAM HYDROBROMIDE [Suspect]
     Indication: POSTPARTUM DEPRESSION
     Dosage: 20 MG; ORAL
     Route: 048
     Dates: start: 20090330, end: 20090331
  2. MIGRALEVE  /00116401/ (PANADEINE CO) [Suspect]
     Indication: MIGRAINE
     Dosage: ORAL
     Route: 048
     Dates: start: 20090330, end: 20090331
  3. FEMODENE [Concomitant]

REACTIONS (5)
  - DIARRHOEA [None]
  - DYSARTHRIA [None]
  - FEELING ABNORMAL [None]
  - MYDRIASIS [None]
  - VOMITING [None]
